FAERS Safety Report 14981884 (Version 1)
Quarter: 2018Q2

REPORT INFORMATION
  Report Type: Spontaneous
  Country: US (occurrence: US)
  Receive Date: 20180607
  Receipt Date: 20180607
  Transmission Date: 20180711
  Serious: Yes (Hospitalization)
  Sender: FDA-Public Use
  Company Number: US-VIVIMED-2018SP004076

PATIENT

DRUGS (4)
  1. METRONIDAZOLE. [Suspect]
     Active Substance: METRONIDAZOLE
     Indication: PNEUMONIA
     Dosage: UNK
     Route: 065
  2. LEVOFLOXACIN. [Concomitant]
     Active Substance: LEVOFLOXACIN
     Indication: PNEUMONIA
     Dosage: UNK
     Route: 065
  3. PREDNISONE. [Concomitant]
     Active Substance: PREDNISONE
     Indication: RHEUMATOID ARTHRITIS
     Dosage: UNK
     Route: 065
  4. METHOTREXATE. [Concomitant]
     Active Substance: METHOTREXATE
     Indication: RHEUMATOID ARTHRITIS
     Dosage: UNK
     Route: 065

REACTIONS (9)
  - Hypokinesia [Recovered/Resolved]
  - Paraesthesia [Recovered/Resolved]
  - Ataxia [Recovered/Resolved]
  - Dyscalculia [Recovered/Resolved]
  - Wernicke^s encephalopathy [Recovered/Resolved]
  - Mental status changes [Recovered/Resolved]
  - Muscular weakness [Recovered/Resolved]
  - Disturbance in attention [Recovered/Resolved]
  - Dysarthria [Recovered/Resolved]
